FAERS Safety Report 8494760-0 (Version None)
Quarter: 2012Q3

REPORT INFORMATION
  Report Type: 
  Country: None (occurrence: None)
  Receive Date: 20120709
  Receipt Date: 20120702
  Transmission Date: 20120928
  Serious: Yes (Hospitalization, Other)
  Sender: FDA-Public Use
  Company Number: US-MSD-1203USA01478

PATIENT

DRUGS (2)
  1. FOSAMAX [Suspect]
     Indication: OSTEOPOROSIS
     Dosage: 70 MG, QW
     Route: 048
     Dates: start: 19990101, end: 20110301
  2. CALCIUM (UNSPECIFIED) [Concomitant]
     Indication: OSTEOPOROSIS

REACTIONS (8)
  - RENAL IMPAIRMENT [None]
  - HYPERTENSION [None]
  - OSTEONECROSIS OF JAW [None]
  - ENDODONTIC PROCEDURE [None]
  - HYPOCALCAEMIA [None]
  - ANAEMIA [None]
  - BURSITIS [None]
  - TOOTH EXTRACTION [None]
